FAERS Safety Report 21845876 (Version 1)
Quarter: 2023Q1

REPORT INFORMATION
  Report Type: Report from Study
  Country: US (occurrence: US)
  Receive Date: 20230111
  Receipt Date: 20230111
  Transmission Date: 20230417
  Serious: Yes (Hospitalization)
  Sender: FDA-Public Use
  Company Number: US-GBT-019221

PATIENT
  Age: 23 Year
  Sex: Male

DRUGS (7)
  1. OXBRYTA [Suspect]
     Active Substance: VOXELOTOR
     Indication: Anaemia
     Dates: start: 20200109, end: 20211130
  2. OXBRYTA [Suspect]
     Active Substance: VOXELOTOR
     Indication: Anaemia
     Dates: start: 20211205
  3. ENDARI [Concomitant]
     Active Substance: GLUTAMINE
     Indication: Product used for unknown indication
  4. LOVENOX [Concomitant]
     Active Substance: ENOXAPARIN SODIUM
     Indication: Prophylaxis
     Dates: start: 202111, end: 202111
  5. MS CONTIN [Concomitant]
     Active Substance: MORPHINE SULFATE
     Indication: Sickle cell disease
     Route: 048
     Dates: start: 20191213, end: 20220520
  6. GLUTAMINE [Concomitant]
     Active Substance: GLUTAMINE
     Indication: Sickle cell disease
     Route: 048
     Dates: start: 20190603
  7. ZOFRAN [Concomitant]
     Active Substance: ONDANSETRON HYDROCHLORIDE
     Indication: Sickle cell anaemia with crisis
     Route: 042
     Dates: start: 20211216, end: 20211216

REACTIONS (4)
  - Sickle cell anaemia with crisis [Recovered/Resolved]
  - Sickle cell anaemia with crisis [Recovered/Resolved]
  - Sickle cell anaemia with crisis [Recovered/Resolved]
  - Pain [Recovered/Resolved]

NARRATIVE: CASE EVENT DATE: 20211114
